FAERS Safety Report 20459050 (Version 2)
Quarter: 2022Q1

REPORT INFORMATION
  Report Type: Spontaneous
  Country: US (occurrence: US)
  Receive Date: 20220211
  Receipt Date: 20220217
  Transmission Date: 20220423
  Serious: Yes (Other)
  Sender: FDA-Public Use
  Company Number: US-BEH-2022141871

PATIENT
  Age: 27 Year
  Sex: Male

DRUGS (1)
  1. HUMATE-P [Suspect]
     Active Substance: HUMAN COAGULATION FACTOR VIII/VON WILLEBRAND FACTOR COMPLEX
     Indication: Factor VIII deficiency
     Dosage: 2400 INTERNATIONAL UNIT, 12-48 HOURS AS NEEDED
     Route: 042
     Dates: start: 202112

REACTIONS (3)
  - Road traffic accident [Unknown]
  - Limb injury [Unknown]
  - Limb injury [Unknown]

NARRATIVE: CASE EVENT DATE: 20211201
